FAERS Safety Report 20216401 (Version 1)
Quarter: 2021Q4

REPORT INFORMATION
  Report Type: Spontaneous
  Country: US (occurrence: None)
  Receive Date: 20211221
  Receipt Date: 20211221
  Transmission Date: 20220303
  Serious: Yes (Hospitalization)
  Sender: FDA-Public Use
  Company Number: None

PATIENT
  Sex: Female

DRUGS (6)
  1. NIVESTYM [Suspect]
     Active Substance: FILGRASTIM-AAFI
     Indication: Immune thrombocytopenia
     Dosage: OTHER FREQUENCY : EVERY 24 HOURS;?
     Route: 058
     Dates: start: 20211105
  2. NIVESTYM [Suspect]
     Active Substance: FILGRASTIM-AAFI
     Indication: Pancytopenia
  3. NIVESTYM [Suspect]
     Active Substance: FILGRASTIM-AAFI
     Indication: Neutropenia
  4. SIROLIMUS [Suspect]
     Active Substance: SIROLIMUS
     Indication: Immune thrombocytopenia
     Dosage: FREQUENCY : DAILY;?
     Route: 048
     Dates: start: 20211105
  5. SIROLIMUS [Suspect]
     Active Substance: SIROLIMUS
     Indication: Pancytopenia
  6. SIROLIMUS [Suspect]
     Active Substance: SIROLIMUS
     Indication: Neutropenia

REACTIONS (2)
  - Hospitalisation [None]
  - Therapy change [None]
